FAERS Safety Report 17545903 (Version 7)
Quarter: 2021Q2

REPORT INFORMATION
  Report Type: Report from Study
  Country: GB (occurrence: GB)
  Receive Date: 20200316
  Receipt Date: 20210423
  Transmission Date: 20210716
  Serious: Yes (Hospitalization, Other)
  Sender: FDA-Public Use
  Company Number: GB-MYLANLABS-2020M1026665

PATIENT
  Age: 54 Year
  Sex: Female

DRUGS (27)
  1. DOCETAXEL. [Suspect]
     Active Substance: DOCETAXEL
     Indication: BREAST CANCER METASTATIC
  2. DEXAMETHASONE. [Concomitant]
     Active Substance: DEXAMETHASONE
     Dosage: 16 MILLIGRAM, QD
     Route: 048
     Dates: start: 20170315
  3. TRASTUZUMAB. [Suspect]
     Active Substance: TRASTUZUMAB
     Indication: HER2 POSITIVE BREAST CANCER
     Dosage: 600 MILLIGRAM, Q3W
     Route: 058
     Dates: start: 20170316, end: 20171130
  4. DEXAMETHASONE. [Concomitant]
     Active Substance: DEXAMETHASONE
     Dosage: 0.5 MILLIGRAM, BID
     Route: 048
     Dates: start: 20190601
  5. PARACETAMOL [Concomitant]
     Active Substance: ACETAMINOPHEN
     Indication: PREMEDICATION
     Dosage: FREQUENCY: ONCE BEFORE TREATMENT
     Route: 048
     Dates: start: 20170316
  6. APREPITANT. [Concomitant]
     Active Substance: APREPITANT
     Dosage: 125 MILLIGRAM, BID(FREQUENCY: ONCE BEFORE TREATMENT)
     Route: 048
     Dates: start: 20170316
  7. ONDANSETRON [Concomitant]
     Active Substance: ONDANSETRON
     Dosage: 8 MILLIGRAM, BID
     Route: 048
     Dates: start: 20170316
  8. DALTEPARIN [Concomitant]
     Active Substance: DALTEPARIN
     Indication: PROPHYLAXIS
     Dosage: 2 PERCENT, QD
     Route: 061
     Dates: start: 20170327, end: 20170328
  9. DEXAMETHASONE. [Concomitant]
     Active Substance: DEXAMETHASONE
     Indication: PROPHYLAXIS OF NAUSEA AND VOMITING
     Dosage: 0.5 MILLIGRAM, QD
     Route: 048
     Dates: start: 20181113
  10. ONDANSETRON [Concomitant]
     Active Substance: ONDANSETRON
     Indication: PROPHYLAXIS OF NAUSEA AND VOMITING
     Dosage: 16 MILLIGRAM, QD
     Route: 048
     Dates: start: 20170316
  11. SODIUM FUSIDATE [Concomitant]
     Active Substance: FUSIDATE SODIUM
     Dosage: 2 PERCENT, QD
     Route: 061
     Dates: start: 20170324, end: 20170328
  12. GRANISETRON [Concomitant]
     Active Substance: GRANISETRON
     Indication: PREMEDICATION
     Dosage: FREQUENCY: ONCE BEFORE TREATMENT
     Route: 042
     Dates: start: 20170316
  13. PERTUZUMAB. [Suspect]
     Active Substance: PERTUZUMAB
     Indication: HER2 POSITIVE BREAST CANCER
     Dosage: 840 MILLIGRAM,FREQUENCY: OTHER
     Route: 042
     Dates: start: 20170316, end: 20170316
  14. DOCETAXEL. [Suspect]
     Active Substance: DOCETAXEL
     Indication: HER2 POSITIVE BREAST CANCER
     Dosage: 120 MILLIGRAM, Q3W
     Route: 042
     Dates: start: 20170316, end: 20170629
  15. APREPITANT. [Concomitant]
     Active Substance: APREPITANT
     Indication: PREMEDICATION
     Dosage: FREQUENCY: ONCE BEFORE TREATMENT
     Route: 048
     Dates: start: 20170316
  16. METOCLOPRAMIDE. [Concomitant]
     Active Substance: METOCLOPRAMIDE
     Dosage: 10 MILLIGRAM, TID
     Route: 048
     Dates: start: 20170316
  17. CHLORPHENAMINE [Concomitant]
     Active Substance: CHLORPHENIRAMINE MALEATE
     Indication: PREMEDICATION
     Dosage: FREQUENCY: ONCE BEFORE TREATMENT
     Route: 042
     Dates: start: 20170316
  18. TRASTUZUMAB. [Suspect]
     Active Substance: TRASTUZUMAB
     Dosage: 600 MILLIGRAM, Q3W
     Route: 041
     Dates: start: 20170316
  19. PERTUZUMAB. [Suspect]
     Active Substance: PERTUZUMAB
     Indication: BREAST CANCER METASTATIC
     Dosage: 420 MILLIGRAM, Q3W
     Route: 042
     Dates: start: 20170406
  20. DEXAMETHASONE. [Concomitant]
     Active Substance: DEXAMETHASONE
     Dosage: 8 MILLIGRAM, BID
     Route: 048
     Dates: start: 20170315
  21. METOCLOPRAMIDE. [Concomitant]
     Active Substance: METOCLOPRAMIDE
     Indication: PROPHYLAXIS OF NAUSEA AND VOMITING
     Dosage: 30 MILLIGRAM, QD
     Route: 048
     Dates: start: 20170316
  22. HYDROCORTISONE. [Concomitant]
     Active Substance: HYDROCORTISONE
     Indication: PREMEDICATION
     Dosage: FREQUENCY: ONCE BEFORE TREATMENT
     Route: 061
     Dates: start: 2015
  23. NISTATIN [Concomitant]
     Active Substance: NYSTATIN
     Dosage: DOSE: 100000 U
     Route: 048
     Dates: start: 20190603
  24. TRASTUZUMAB. [Suspect]
     Active Substance: TRASTUZUMAB
     Indication: BREAST CANCER METASTATIC
     Dosage: 350 MILLIGRAM, Q3W
     Route: 042
     Dates: start: 20171220
  25. XGEVA [Suspect]
     Active Substance: DENOSUMAB
     Indication: BONE DISORDER
     Dosage: 120 MILLIGRAM, 6 WEEKS
     Route: 058
     Dates: start: 20180111
  26. DEXAMETHASONE. [Concomitant]
     Active Substance: DEXAMETHASONE
     Indication: PREMEDICATION
     Dosage: 1 MILLIGRAM, QD
     Route: 048
     Dates: start: 201811, end: 20181113
  27. DEXAMETHASONE. [Concomitant]
     Active Substance: DEXAMETHASONE
     Indication: PREMEDICATION
     Dosage: ONCE BEFORE TREATMENT
     Route: 042
     Dates: start: 20170316

REACTIONS (12)
  - Haematemesis [Recovered/Resolved]
  - Alopecia [Recovered/Resolved]
  - Candida infection [Recovered/Resolved]
  - Nausea [Not Recovered/Not Resolved]
  - Hypernatraemia [Recovered/Resolved]
  - Onychalgia [Recovered/Resolved]
  - Off label use [Unknown]
  - Malaise [Recovered/Resolved]
  - Pain in jaw [Recovered/Resolved]
  - Fatigue [Recovered/Resolved]
  - Decreased appetite [Not Recovered/Not Resolved]
  - Neutropenia [Recovered/Resolved]

NARRATIVE: CASE EVENT DATE: 201703
